FAERS Safety Report 9714289 (Version 3)
Quarter: 2015Q3

REPORT INFORMATION
  Report Type: Spontaneous
  Country: US (occurrence: US)
  Receive Date: 20131126
  Receipt Date: 20150803
  Transmission Date: 20151125
  Serious: No
  Sender: FDA-Public Use
  Company Number: US-GILEAD-2008-0018786

PATIENT
  Sex: Female
  Weight: 89.81 kg

DRUGS (18)
  1. SPIRIVA [Suspect]
     Active Substance: TIOTROPIUM BROMIDE MONOHYDRATE
     Route: 055
  2. FLONASE [Suspect]
     Active Substance: FLUTICASONE PROPIONATE
     Route: 055
  3. K-DUR [Suspect]
     Active Substance: POTASSIUM CHLORIDE
     Route: 048
  4. FLUOXETINE [Suspect]
     Active Substance: FLUOXETINE\FLUOXETINE HYDROCHLORIDE
     Route: 048
  5. HYDROCODONE [Suspect]
     Active Substance: HYDROCODONE
     Route: 048
  6. TUMS [Suspect]
     Active Substance: CALCIUM CARBONATE
     Route: 048
  7. COUMADIN [Suspect]
     Active Substance: WARFARIN SODIUM
     Route: 048
  8. DIGOXIN. [Suspect]
     Active Substance: DIGOXIN
     Route: 048
  9. ALBUTEROL. [Suspect]
     Active Substance: ALBUTEROL
     Route: 055
  10. CLONAZEPAM. [Suspect]
     Active Substance: CLONAZEPAM
     Route: 048
  11. AMBIEN CR [Suspect]
     Active Substance: ZOLPIDEM TARTRATE
     Route: 048
  12. LEVOTHROID [Suspect]
     Active Substance: LEVOTHYROXINE SODIUM
     Route: 048
  13. LETAIRIS [Suspect]
     Active Substance: AMBRISENTAN
     Indication: PULMONARY ARTERIAL HYPERTENSION
     Route: 048
     Dates: start: 20070901
  14. OXYGEN. [Suspect]
     Active Substance: OXYGEN
     Route: 045
  15. TOPROL XL [Suspect]
     Active Substance: METOPROLOL SUCCINATE
     Route: 048
  16. LOMOTIL [Suspect]
     Active Substance: ATROPINE SULFATE\DIPHENOXYLATE HYDROCHLORIDE
     Route: 048
  17. VIAGRA [Suspect]
     Active Substance: SILDENAFIL CITRATE
     Route: 048
  18. FUROSEMIDE. [Suspect]
     Active Substance: FUROSEMIDE
     Route: 048

REACTIONS (1)
  - Migraine [Unknown]
